FAERS Safety Report 4673296-9 (Version None)
Quarter: 2005Q2

REPORT INFORMATION
  Report Type: 
  Country: None (occurrence: None)
  Receive Date: 20050524
  Receipt Date: 20050524
  Transmission Date: 20051028
  Serious: Yes (Hospitalization)
  Sender: FDA-Public Use
  Company Number: None

PATIENT
  Age: 76 Year
  Sex: Male
  Weight: 110.6777 kg

DRUGS (21)
  1. IRINOTECAN HCL [Suspect]
     Indication: SMALL CELL LUNG CANCER STAGE UNSPECIFIED
     Dosage: 125 MG IV ONCE A WEEK
     Route: 042
     Dates: start: 20050203, end: 20050210
  2. ACETAMINOPHEN [Concomitant]
  3. ASPIRIN [Concomitant]
  4. ATENOLOL [Concomitant]
  5. ISOSORBIDE MONONITRATE [Concomitant]
  6. LACTULOSE [Concomitant]
  7. LISINOPRIL [Concomitant]
  8. LORATADINE [Concomitant]
  9. ALBUTEROL [Concomitant]
  10. COMBIVENT [Concomitant]
  11. WARFARIN SODIUM [Concomitant]
  12. DOCUSATE [Concomitant]
  13. POTASSIUM CHLORIDE [Concomitant]
  14. SIMVASTATIN [Concomitant]
  15. FUROSEMIDE [Concomitant]
  16. ALLOPURINOL [Concomitant]
  17. PHYTONADIONE [Concomitant]
  18. LOPERAMIDE [Concomitant]
  19. METOCLOPRAMIDE [Concomitant]
  20. OMEPRAZOLE [Concomitant]
  21. SALSALATE [Concomitant]

REACTIONS (8)
  - DIARRHOEA [None]
  - FEBRILE NEUTROPENIA [None]
  - HYPOVOLAEMIA [None]
  - LETHARGY [None]
  - MENTAL STATUS CHANGES [None]
  - ORAL INTAKE REDUCED [None]
  - SEPTIC SHOCK [None]
  - VOMITING [None]
